FAERS Safety Report 9001242 (Version 1)
Quarter: 2013Q1

REPORT INFORMATION
  Report Type: Report from Study
  Country: NO (occurrence: NO)
  Receive Date: 20130107
  Receipt Date: 20130107
  Transmission Date: 20140127
  Serious: Yes (Hospitalization)
  Sender: FDA-Public Use
  Company Number: NO-BRISTOL-MYERS SQUIBB COMPANY-15110752

PATIENT
  Age: 70 Year
  Sex: Male

DRUGS (7)
  1. SAXAGLIPTIN [Suspect]
     Indication: TYPE 2 DIABETES MELLITUS
     Route: 048
     Dates: start: 20091116, end: 20100516
  2. GLUCOPHAGE [Suspect]
     Indication: TYPE 2 DIABETES MELLITUS
     Route: 048
  3. PLACEBO [Suspect]
     Indication: TYPE 2 DIABETES MELLITUS
     Dosage: INTERRUPTED ON 14MAY2010 WITH GLIMEPIRIDE
     Route: 048
     Dates: start: 20091116, end: 20100516
  4. LIPITOR [Concomitant]
     Indication: HYPERCHOLESTEROLAEMIA
     Route: 048
  5. ATACAND [Concomitant]
     Indication: HYPERTENSION
     Route: 048
  6. LORATADINE [Concomitant]
     Indication: RHINITIS ALLERGIC
     Route: 048
  7. NASONEX [Concomitant]
     Indication: RHINITIS ALLERGIC
     Route: 045

REACTIONS (1)
  - Cholecystitis [Not Recovered/Not Resolved]
